FAERS Safety Report 21615696 (Version 1)
Quarter: 2022Q4

REPORT INFORMATION
  Report Type: Spontaneous
  Country: PT (occurrence: None)
  Receive Date: 20221118
  Receipt Date: 20221118
  Transmission Date: 20230113
  Serious: Yes (Other)
  Sender: FDA-Public Use
  Company Number: 2022A372996

PATIENT
  Age: 64 Year
  Sex: Female

DRUGS (1)
  1. QUETIAPINE [Suspect]
     Active Substance: QUETIAPINE
     Route: 048

REACTIONS (10)
  - Thrombotic microangiopathy [Recovering/Resolving]
  - Renal impairment [Recovering/Resolving]
  - Hyperbilirubinaemia [Recovering/Resolving]
  - Thrombocytopenia [Recovering/Resolving]
  - Anaemia [Recovering/Resolving]
  - Petechiae [Recovering/Resolving]
  - Abdominal pain [Recovering/Resolving]
  - Hyperhidrosis [Recovering/Resolving]
  - Myalgia [Recovering/Resolving]
  - Chills [Recovering/Resolving]
